FAERS Safety Report 10180679 (Version 1)
Quarter: 2014Q2

REPORT INFORMATION
  Report Type: Spontaneous
  Country: US (occurrence: US)
  Receive Date: 20140519
  Receipt Date: 20140519
  Transmission Date: 20141212
  Serious: No
  Sender: FDA-Public Use
  Company Number: US-AMGEN INC.-USASP2014017639

PATIENT
  Age: 84 Year
  Sex: Female

DRUGS (4)
  1. PROLIA [Suspect]
     Indication: OSTEOPOROSIS POSTMENOPAUSAL
     Dosage: 60 MG, Q6MO
     Route: 065
     Dates: start: 201311
  2. CARDIZEM                           /00489701/ [Concomitant]
  3. MIRALAX                            /00754501/ [Concomitant]
  4. TYLENOL                            /00020001/ [Concomitant]

REACTIONS (2)
  - Toothache [Unknown]
  - Tooth disorder [Unknown]
